FAERS Safety Report 4373032-X (Version None)
Quarter: 2004Q2

REPORT INFORMATION
  Report Type: 
  Country: None (occurrence: None)
  Receive Date: 20040603
  Receipt Date: 20040514
  Transmission Date: 20050107
  Serious: Yes (Other)
  Sender: FDA-Public Use
  Company Number: US_0405103176

PATIENT
  Age: 69 Year
  Sex: Male

DRUGS (3)
  1. PERGOLIDE MESYLATE [Suspect]
     Indication: PARKINSON'S DISEASE
     Dates: start: 19990101, end: 20030101
  2. ROPINIROLE [Concomitant]
  3. LEVODOPA [Concomitant]

REACTIONS (7)
  - CONFUSIONAL STATE [None]
  - MITRAL VALVE INCOMPETENCE [None]
  - OEDEMA PERIPHERAL [None]
  - PULMONARY VALVE INCOMPETENCE [None]
  - RESTLESSNESS [None]
  - RESTRICTIVE CARDIOMYOPATHY [None]
  - TRICUSPID VALVE INCOMPETENCE [None]
